FAERS Safety Report 9222969 (Version 1)
Quarter: 2013Q2

REPORT INFORMATION
  Report Type: Spontaneous
  Country: NL (occurrence: NL)
  Receive Date: 20130410
  Receipt Date: 20130410
  Transmission Date: 20140414
  Serious: Yes (Other)
  Sender: FDA-Public Use
  Company Number: NL-ROCHE-1198265

PATIENT
  Sex: Female
  Weight: 71 kg

DRUGS (9)
  1. PEG-INTERFERON ALFA 2A [Suspect]
     Indication: HEPATITIS C
     Route: 065
  2. ROFERON-A [Suspect]
     Indication: CHRONIC HEPATITIS C
     Route: 058
     Dates: start: 19991008
  3. INTRON A [Suspect]
     Indication: CHRONIC HEPATITIS C
     Route: 058
     Dates: start: 20040421, end: 20040712
  4. AMANTADINE [Concomitant]
     Indication: CHRONIC HEPATITIS C
     Route: 048
     Dates: start: 20040421, end: 20040712
  5. RIBAVIRIN [Concomitant]
     Indication: CHRONIC HEPATITIS C
     Route: 048
     Dates: start: 19991008
  6. RIBAVIRIN [Concomitant]
     Route: 048
     Dates: start: 20040421, end: 20040712
  7. URSOCHOL [Concomitant]
     Indication: CHRONIC HEPATITIS C
     Route: 048
     Dates: start: 19991008
  8. THYRAX [Concomitant]
     Indication: HYPOTHYROIDISM
     Route: 048
     Dates: start: 200004
  9. PROZAC [Concomitant]
     Indication: DEPRESSION
     Route: 048
     Dates: start: 19991124, end: 2000

REACTIONS (2)
  - Disturbance in attention [Not Recovered/Not Resolved]
  - Cognitive disorder [Not Recovered/Not Resolved]
